FAERS Safety Report 14318286 (Version 1)
Quarter: 2017Q4

REPORT INFORMATION
  Report Type: Report from Study
  Country: ZA (occurrence: ZA)
  Receive Date: 20171222
  Receipt Date: 20171222
  Transmission Date: 20180321
  Serious: Yes (Death, Hospitalization, Other)
  Sender: FDA-Public Use
  Company Number: ZA-AMGEN-ZAFSL2017189146

PATIENT
  Age: 45 Year
  Sex: Female

DRUGS (1)
  1. ARANESP [Suspect]
     Active Substance: DARBEPOETIN ALFA
     Indication: CHRONIC KIDNEY DISEASE
     Dosage: 50 MCG, QWK
     Route: 058
     Dates: start: 201508, end: 201710

REACTIONS (3)
  - Epilepsy [Fatal]
  - Sepsis [Fatal]
  - Pneumonia [Fatal]
